FAERS Safety Report 14962719 (Version 1)
Quarter: 2018Q2

REPORT INFORMATION
  Report Type: Spontaneous
  Country: IT (occurrence: IT)
  Receive Date: 20180601
  Receipt Date: 20180601
  Transmission Date: 20180711
  Serious: Yes (Other)
  Sender: FDA-Public Use
  Company Number: IT-ELI_LILLY_AND_COMPANY-IT201805013365

PATIENT
  Age: 47 Year
  Sex: Female
  Weight: 84 kg

DRUGS (5)
  1. ERBITUX [Suspect]
     Active Substance: CETUXIMAB
     Indication: ADENOCARCINOMA OF COLON
     Dosage: 890 MG, UNKNOWN
     Route: 042
     Dates: start: 20170904
  2. LEVOLEUCOVORIN                     /06682101/ [Concomitant]
     Active Substance: LEVOLEUCOVORIN
     Dosage: 280 MG, UNKNOWN
     Route: 042
  3. FLUOROURACIL. [Suspect]
     Active Substance: FLUOROURACIL
     Indication: ADENOCARCINOMA OF COLON
     Dosage: 4270 MG, UNKNOWN
     Route: 042
     Dates: start: 20170904
  4. IRINOTECAN HYDROCHLORIDE TRIHYDRATE/01280202/ [Suspect]
     Active Substance: IRINOTECAN HYDROCHLORIDE
     Indication: ADENOCARCINOMA OF COLON
     Dosage: 320 MG, UNKNOWN
     Route: 042
     Dates: start: 20170904
  5. LEVOLEUCOVORIN                     /06682101/ [Concomitant]
     Active Substance: LEVOLEUCOVORIN
     Indication: ADENOCARCINOMA OF COLON
     Dosage: 280 MG, CYCLICAL
     Route: 042
     Dates: start: 20170904

REACTIONS (1)
  - Febrile neutropenia [Recovering/Resolving]

NARRATIVE: CASE EVENT DATE: 20171013
